FAERS Safety Report 7434291-X (Version None)
Quarter: 2011Q2

REPORT INFORMATION
  Report Type: 
  Country: None (occurrence: None)
  Receive Date: 20110415
  Receipt Date: 20110409
  Transmission Date: 20111010
  Serious: Yes (Death, Hospitalization)
  Sender: FDA-Public Use
  Company Number: FK201100677

PATIENT
  Age: 56 Year
  Sex: Female
  Weight: 44 kg

DRUGS (2)
  1. PACLITAXEL [Suspect]
  2. PACLITAXEL [Suspect]
     Indication: BREAST CANCER
     Dosage: 364 MG, CYCLE 1, INTRAVENOUS
     Route: 042
     Dates: start: 20110406, end: 20110406

REACTIONS (2)
  - DIZZINESS [None]
  - DYSPNOEA [None]
